FAERS Safety Report 16345244 (Version 1)
Quarter: 2019Q2

REPORT INFORMATION
  Report Type: Spontaneous
  Country: US (occurrence: US)
  Receive Date: 20190523
  Receipt Date: 20190523
  Transmission Date: 20190711
  Serious: No
  Sender: FDA-Public Use
  Company Number: US-ROCHE-2299368

PATIENT
  Age: 16 Year
  Sex: Male
  Weight: 69.01 kg

DRUGS (1)
  1. XOFLUZA [Suspect]
     Active Substance: BALOXAVIR MARBOXIL
     Indication: INFLUENZA
     Dosage: ON TIME DOSE ;ONGOING: NO
     Route: 065
     Dates: start: 20190327

REACTIONS (4)
  - Hallucination [Recovered/Resolved]
  - Eye pain [Recovered/Resolved]
  - Platelet count decreased [Unknown]
  - Dizziness [Recovered/Resolved]

NARRATIVE: CASE EVENT DATE: 20190327
